FAERS Safety Report 14944086 (Version 1)
Quarter: 2018Q2

REPORT INFORMATION
  Report Type: Spontaneous
  Country: FR (occurrence: FR)
  Receive Date: 20180528
  Receipt Date: 20180528
  Transmission Date: 20180711
  Serious: Yes (Death)
  Sender: FDA-Public Use
  Company Number: FR-ACCORD-067721

PATIENT
  Age: 24 Year
  Sex: Male

DRUGS (5)
  1. QUETIAPINE. [Suspect]
     Active Substance: QUETIAPINE
     Dosage: REGIMEN 1
  2. SERTRALINE [Suspect]
     Active Substance: SERTRALINE HYDROCHLORIDE
     Dosage: REGIMEN 1
  3. DIAZEPAM. [Suspect]
     Active Substance: DIAZEPAM
     Dosage: REGIMEN 1
  4. DIAMORPHINE [Suspect]
     Active Substance: DIAMORPHINE
     Dosage: REGIMEN 1
  5. NORDAZEPAM [Suspect]
     Active Substance: NORDAZEPAM
     Dosage: REGIMEN 1

REACTIONS (2)
  - Drug abuse [Fatal]
  - Drug dependence [Fatal]

NARRATIVE: CASE EVENT DATE: 2018
